FAERS Safety Report 9999118 (Version 1)
Quarter: 2014Q1

REPORT INFORMATION
  Report Type: Spontaneous
  Country: US (occurrence: None)
  Receive Date: 20140311
  Receipt Date: 20140311
  Transmission Date: 20141002
  Serious: No
  Sender: FDA-Public Use
  Company Number: None

PATIENT
  Age: 54 Year
  Sex: Male
  Weight: 81.65 kg

DRUGS (1)
  1. SERTRALINE, 100 MG, GREENSTONE [Suspect]
     Indication: BACK PAIN
     Dosage: TAKEN BY MOUTH
     Dates: start: 20140305, end: 20140309

REACTIONS (2)
  - Dyspepsia [None]
  - Abdominal pain upper [None]
